FAERS Safety Report 24436368 (Version 2)
Quarter: 2024Q4

REPORT INFORMATION
  Report Type: Report from Study
  Country: FR (occurrence: FR)
  Receive Date: 20241015
  Receipt Date: 20241115
  Transmission Date: 20250115
  Serious: Yes (Other)
  Sender: TEVA
  Company Number: FR-TEVA-VS-3252423

PATIENT

DRUGS (4)
  1. VENLAFAXINE [Interacting]
     Active Substance: VENLAFAXINE HYDROCHLORIDE
     Indication: Product used for unknown indication
     Route: 065
  2. CABOZANTINIB [Interacting]
     Active Substance: CABOZANTINIB
     Indication: Renal cancer metastatic
     Route: 065
  3. ASPIRIN [Interacting]
     Active Substance: ASPIRIN
     Indication: Tumour thrombosis
     Route: 065
  4. RIVAROXABAN [Interacting]
     Active Substance: RIVAROXABAN
     Indication: Tumour thrombosis
     Route: 065

REACTIONS (3)
  - Haemorrhage [Unknown]
  - Drug interaction [Unknown]
  - Drug interaction [Unknown]
